FAERS Safety Report 18628229 (Version 1)
Quarter: 2020Q4

REPORT INFORMATION
  Report Type: Spontaneous
  Country: RO (occurrence: RO)
  Receive Date: 20201217
  Receipt Date: 20201217
  Transmission Date: 20210114
  Serious: Yes (Other)
  Sender: FDA-Public Use
  Company Number: RO-TEVA-2020-RO-1859800

PATIENT
  Age: 51 Year
  Sex: Male

DRUGS (13)
  1. CISPLATIN. [Suspect]
     Active Substance: CISPLATIN
     Indication: B-CELL LYMPHOMA
     Dosage: (6 CYCLES R-DHAP)
     Route: 065
  2. CYCLOPHOSPHAMIDE. [Suspect]
     Active Substance: CYCLOPHOSPHAMIDE
     Indication: B-CELL LYMPHOMA
     Dosage: (8 R-CHOP CYCLES)
     Route: 065
     Dates: start: 201801, end: 201807
  3. BENDAMUSTINE HYDROCHLORIDE. [Suspect]
     Active Substance: BENDAMUSTINE HYDROCHLORIDE
     Indication: B-CELL LYMPHOMA
     Dosage: (TD 180MG),D1, 2
     Route: 042
     Dates: start: 20191127
  4. RITUXIMAB. [Suspect]
     Active Substance: RITUXIMAB
     Dosage: (MAINTENANCE IMMUNOTHERAPY)
     Route: 058
  5. DOXORUBICIN [Suspect]
     Active Substance: DOXORUBICIN
     Indication: B-CELL LYMPHOMA
     Dosage: (8 R-CHOP CYCLES)
     Route: 065
     Dates: start: 201801, end: 201807
  6. PREDNISOLONE. [Suspect]
     Active Substance: PREDNISOLONE
     Indication: B-CELL LYMPHOMA
     Dosage: (8 R-CHOP CYCLES)
     Route: 065
     Dates: start: 201801, end: 201807
  7. VINCRISTINE [Suspect]
     Active Substance: VINCRISTINE
     Indication: B-CELL LYMPHOMA
     Dosage: (8 R-CHOP CYCLES)
     Route: 065
     Dates: start: 201801, end: 201807
  8. OBINUTUZUMAB. [Suspect]
     Active Substance: OBINUTUZUMAB
     Indication: B-CELL LYMPHOMA
     Dosage: CYCLIC (ONCE DAILY) (D1, 8, 15)
     Route: 042
     Dates: start: 20191127
  9. RITUXIMAB. [Suspect]
     Active Substance: RITUXIMAB
     Indication: B-CELL LYMPHOMA
     Dosage: (8 R-CHOP CYCLES)
     Route: 065
     Dates: start: 201801, end: 201807
  10. BENDAMUSTINE HYDROCHLORIDE. [Suspect]
     Active Substance: BENDAMUSTINE HYDROCHLORIDE
     Dosage: (6 CYCLES, D1,2)
     Route: 042
     Dates: start: 201912, end: 202004
  11. RITUXIMAB. [Suspect]
     Active Substance: RITUXIMAB
     Dosage: (R-DHAP 6 CYCLES)
     Route: 065
  12. OBINUTUZUMAB. [Suspect]
     Active Substance: OBINUTUZUMAB
     Dosage: CYCLIC (ONCE DAILY) (6 CYCLES D1)
     Route: 042
     Dates: start: 201912, end: 202004
  13. DEXAMETHASONE. [Suspect]
     Active Substance: DEXAMETHASONE
     Indication: B-CELL LYMPHOMA
     Dosage: (6 CYCLES R-DHAP)
     Route: 065

REACTIONS (4)
  - Therapy partial responder [Unknown]
  - Neoplasm [Unknown]
  - Metabolic disorder [Unknown]
  - Hyperglycaemia [Unknown]

NARRATIVE: CASE EVENT DATE: 201801
